FAERS Safety Report 23947072 (Version 2)
Quarter: 2024Q2

REPORT INFORMATION
  Report Type: Spontaneous
  Country: JP (occurrence: None)
  Receive Date: 20240606
  Receipt Date: 20240611
  Transmission Date: 20240715
  Serious: Yes (Other)
  Sender: FDA-Public Use
  Company Number: 2024A130682

PATIENT
  Age: 90 Year
  Sex: Female

DRUGS (3)
  1. QUETIAPINE [Interacting]
     Active Substance: QUETIAPINE
     Indication: Psychotic disorder
     Dosage: 25 MG/DAY, UNKNOWN FREQ.
     Route: 048
  2. TRAMADOL HYDROCHLORIDE [Interacting]
     Active Substance: TRAMADOL HYDROCHLORIDE
     Indication: Pain
     Dosage: 75 MG/DAY, UNKNOWN FREQ.
     Route: 048
  3. TRAMADOL HYDROCHLORIDE [Interacting]
     Active Substance: TRAMADOL HYDROCHLORIDE
     Indication: Pain
     Dosage: 100 MG/DAY, UNKNOWN FREQ.
     Route: 048

REACTIONS (3)
  - Drug interaction [Unknown]
  - Serotonin syndrome [Recovering/Resolving]
  - Off label use [Unknown]
